FAERS Safety Report 19079567 (Version 1)
Quarter: 2021Q1

REPORT INFORMATION
  Report Type: Spontaneous
  Country: JP (occurrence: JP)
  Receive Date: 20210331
  Receipt Date: 20210331
  Transmission Date: 20210420
  Serious: Yes (Death, Other)
  Sender: FDA-Public Use
  Company Number: JP-VALIDUS PHARMACEUTICALS LLC-JP-2021VAL000799

PATIENT
  Age: 79 Year
  Sex: Female

DRUGS (1)
  1. LASIX [Suspect]
     Active Substance: FUROSEMIDE
     Indication: PRODUCT USED FOR UNKNOWN INDICATION
     Dosage: UNK
     Route: 048

REACTIONS (7)
  - Condition aggravated [Unknown]
  - Blood urea increased [Unknown]
  - Renal failure [Fatal]
  - Renal impairment [Unknown]
  - Renal atrophy [Unknown]
  - Congenital cystic kidney disease [Unknown]
  - Blood creatinine increased [Unknown]
